FAERS Safety Report 10749080 (Version 1)
Quarter: 2015Q1

REPORT INFORMATION
  Report Type: Spontaneous
  Country: IT (occurrence: IT)
  Receive Date: 20150129
  Receipt Date: 20150129
  Transmission Date: 20150721
  Serious: Yes (Life-Threatening, Hospitalization, Other)
  Sender: FDA-Public Use
  Company Number: IT-BAYER-2015-008935

PATIENT
  Age: 86 Year
  Sex: Female

DRUGS (5)
  1. INSULIN [Concomitant]
     Active Substance: INSULIN NOS
     Indication: TYPE 2 DIABETES MELLITUS
  2. METFORMIN [Suspect]
     Active Substance: METFORMIN HYDROCHLORIDE
     Indication: TYPE 2 DIABETES MELLITUS
     Dosage: DAILY DOSE 1750 MG PER DAY
  3. ACETYLSALICYLIC ACID({=100 MG) [Suspect]
     Active Substance: ASPIRIN
  4. GLIMEPIRIDE. [Concomitant]
     Active Substance: GLIMEPIRIDE
     Indication: TYPE 2 DIABETES MELLITUS
  5. RAMIPRIL. [Concomitant]
     Active Substance: RAMIPRIL
     Indication: HYPERTENSION

REACTIONS (11)
  - Cardiac arrest [Recovered/Resolved]
  - Hypothermia [Recovering/Resolving]
  - Cerebral ischaemia [None]
  - Lactic acidosis [Recovering/Resolving]
  - Acute kidney injury [Recovering/Resolving]
  - Neutrophilia [None]
  - Toxicity to various agents [Recovering/Resolving]
  - Anuria [Recovering/Resolving]
  - Hypotension [Recovering/Resolving]
  - Hyperkalaemia [Recovering/Resolving]
  - Confusional state [Recovering/Resolving]
